FAERS Safety Report 13178494 (Version 3)
Quarter: 2017Q2

REPORT INFORMATION
  Report Type: Report from Study
  Country: GB (occurrence: GB)
  Receive Date: 20170202
  Receipt Date: 20170410
  Transmission Date: 20170830
  Serious: Yes (Death)
  Sender: FDA-Public Use
  Company Number: GB-ROCHE-1880095

PATIENT
  Age: 57 Year
  Sex: Male
  Weight: 74.3 kg

DRUGS (23)
  1. PARACETAMOL [Concomitant]
     Active Substance: ACETAMINOPHEN
     Indication: PAIN
     Route: 048
     Dates: start: 20150601
  2. HUMULIN L [Concomitant]
     Active Substance: INSULIN HUMAN
     Dosage: 10 UNIT
     Route: 042
     Dates: start: 20160115, end: 20160121
  3. IRON SUCROSE [Concomitant]
     Active Substance: IRON SUCROSE
     Indication: ANAEMIA
     Route: 042
     Dates: start: 20160118, end: 20160120
  4. FERROUS SULFATE. [Concomitant]
     Active Substance: FERROUS SULFATE
     Indication: ANAEMIA
     Route: 048
     Dates: start: 20160117, end: 20160117
  5. RED CELL CONCENTRATE [Concomitant]
     Dosage: 1 UNIT
     Route: 042
     Dates: start: 20160114, end: 20160114
  6. PARACETAMOL [Concomitant]
     Active Substance: ACETAMINOPHEN
     Route: 048
     Dates: start: 20160207
  7. AMITRIPTYLINE [Concomitant]
     Active Substance: AMITRIPTYLINE
     Indication: PAIN
     Route: 048
     Dates: start: 20150812
  8. MST (MORPHINE) [Concomitant]
     Indication: PAIN
     Route: 048
     Dates: start: 20151029
  9. HUMULIN L [Concomitant]
     Active Substance: INSULIN HUMAN
     Dosage: 12 UNIT
     Route: 042
     Dates: start: 20160113, end: 20160115
  10. SENNA [Concomitant]
     Active Substance: SENNA LEAF\SENNOSIDES\SENNOSIDES A AND B
     Indication: CONSTIPATION
     Route: 048
     Dates: start: 201511
  11. ATEZOLIZUMAB [Suspect]
     Active Substance: ATEZOLIZUMAB
     Indication: BLADDER TRANSITIONAL CELL CARCINOMA
     Dosage: FIXED DOSE PER PROTOCOL. MOST RECENT DOSE PRIOR TO THE EVENT ONSET: 06/NOV/2015
     Route: 042
     Dates: start: 20150814
  12. ZOMORPH [Concomitant]
     Active Substance: MORPHINE SULFATE
     Indication: PAIN
     Route: 048
     Dates: start: 20151115, end: 20160207
  13. ORAMORPH [Concomitant]
     Active Substance: MORPHINE SULFATE
     Indication: PAIN
     Route: 048
     Dates: start: 20150601
  14. RED CELL CONCENTRATE [Concomitant]
     Indication: ANAEMIA
     Dosage: 1 UNIT
     Route: 042
     Dates: start: 20160119, end: 20160120
  15. DALTEPARIN [Concomitant]
     Active Substance: DALTEPARIN
     Indication: DEEP VEIN THROMBOSIS
     Dosage: 5000 UNIT
     Route: 058
     Dates: start: 20160115, end: 20160120
  16. FERROUS FUMARATE [Concomitant]
     Active Substance: FERROUS FUMARATE
     Indication: ANAEMIA
     Route: 048
     Dates: start: 20160117, end: 20160121
  17. HUMULIN L [Concomitant]
     Active Substance: INSULIN HUMAN
     Indication: DIABETES MELLITUS
     Dosage: DOSE: 15 UNITS
     Route: 058
     Dates: start: 20151201
  18. HUMULIN L [Concomitant]
     Active Substance: INSULIN HUMAN
     Dosage: DOSE: 14 U
     Route: 058
     Dates: start: 20151201
  19. SENNA [Concomitant]
     Active Substance: SENNA LEAF\SENNOSIDES\SENNOSIDES A AND B
     Route: 048
     Dates: start: 20160117, end: 20160123
  20. DOXYCYCLINE. [Concomitant]
     Active Substance: DOXYCYCLINE
     Indication: INFECTION
     Route: 048
     Dates: start: 20160119, end: 20160125
  21. HUMULIN L [Concomitant]
     Active Substance: INSULIN HUMAN
     Dosage: 8 UNIT
     Route: 042
     Dates: start: 20160118, end: 20160120
  22. FERROUS FUMARATE [Concomitant]
     Active Substance: FERROUS FUMARATE
     Route: 048
     Dates: start: 20160121, end: 20160121
  23. FOLIC ACID. [Concomitant]
     Active Substance: FOLIC ACID
     Indication: ANAEMIA
     Route: 048
     Dates: start: 20160117, end: 20160121

REACTIONS (1)
  - Death [Fatal]

NARRATIVE: CASE EVENT DATE: 20160207
